FAERS Safety Report 23867148 (Version 1)
Quarter: 2024Q2

REPORT INFORMATION
  Report Type: Spontaneous
  Country: AU (occurrence: AU)
  Receive Date: 20240517
  Receipt Date: 20240517
  Transmission Date: 20240716
  Serious: Yes (Hospitalization, Other)
  Sender: FDA-Public Use
  Company Number: AU-MLMSERVICE-20240501-PI046276-00224-1

PATIENT
  Age: 9 Year
  Sex: Female

DRUGS (7)
  1. CLOBAZAM [Suspect]
     Active Substance: CLOBAZAM
     Indication: Atonic seizures
  2. MIDAZOLAM [Suspect]
     Active Substance: MIDAZOLAM
     Indication: Status epilepticus
     Dosage: INITIAL DOSE UNKNOWN
  3. BRIVARACETAM [Concomitant]
     Active Substance: BRIVARACETAM
     Indication: Atonic seizures
  4. PHENYTOIN [Concomitant]
     Active Substance: PHENYTOIN
     Indication: Atonic seizures
  5. MIDAZOLAM [Suspect]
     Active Substance: MIDAZOLAM
     Indication: Eyelid myoclonus
     Dosage: INITIAL DOSE UNKNOWN
  6. MIDAZOLAM [Suspect]
     Active Substance: MIDAZOLAM
     Indication: Status epilepticus
     Dosage: INCREASED UP TO A MAXIMUM OF 5MCG/KG/MIN
  7. MIDAZOLAM [Suspect]
     Active Substance: MIDAZOLAM
     Indication: Eyelid myoclonus
     Dosage: INCREASED UP TO A MAXIMUM OF 5MCG/KG/MIN

REACTIONS (4)
  - Condition aggravated [Unknown]
  - Atonic seizures [Unknown]
  - Paradoxical drug reaction [Unknown]
  - Off label use [Unknown]
